FAERS Safety Report 8195412-7 (Version None)
Quarter: 2012Q1

REPORT INFORMATION
  Report Type: 
  Country: None (occurrence: None)
  Receive Date: 20120308
  Receipt Date: 20120302
  Transmission Date: 20120608
  Serious: Yes (Hospitalization)
  Sender: FDA-Public Use
  Company Number: PHHY2012FI018622

PATIENT
  Sex: Male

DRUGS (9)
  1. EXELON [Suspect]
     Indication: DEMENTIA
     Dosage: 1.5 MG, BID
     Route: 048
     Dates: start: 20120201, end: 20120207
  2. AMLODIPINE [Concomitant]
     Dosage: 10 MG/DAY
     Dates: start: 20110324
  3. NEUROTOL - SLOW RELEASE [Concomitant]
     Dosage: 600 MG, PER DAY
     Dates: start: 20110324
  4. SINEMET [Concomitant]
     Dosage: 200/800 MG/DAY
     Dates: start: 20110831
  5. DEVISOL [Concomitant]
     Dosage: 20 UG, PER DAY
     Dates: start: 20111130
  6. THYROXIN [Concomitant]
     Dosage: 0.15 MG, PER DAY
     Dates: start: 20051105
  7. LEVOLAC [Concomitant]
     Dosage: 20 ML, PER DAY
     Dates: start: 20110727
  8. EMCONCOR CHF [Concomitant]
     Dosage: 2.5 MG, UNK
     Dates: start: 20110726
  9. SINEMET [Concomitant]
     Dosage: 50/200MG/DAY
     Dates: start: 20110811

REACTIONS (2)
  - HEPATIC ENZYME INCREASED [None]
  - C-REACTIVE PROTEIN INCREASED [None]
